FAERS Safety Report 7298209-5 (Version None)
Quarter: 2011Q1

REPORT INFORMATION
  Report Type: 
  Country: None (occurrence: None)
  Receive Date: 20110131
  Receipt Date: 20110120
  Transmission Date: 20110831
  Serious: Yes (Other)
  Sender: FDA-Public Use
  Company Number: AEDEU201000445

PATIENT
  Age: 41 Year
  Sex: Male
  Weight: 65 kg

DRUGS (1)
  1. GAMUNEX [Suspect]
     Indication: POLYNEUROPATHY
     Dosage: 1X;IV
     Route: 042
     Dates: start: 20101214, end: 20101214

REACTIONS (3)
  - NAUSEA [None]
  - BLOOD PRESSURE DECREASED [None]
  - CIRCULATORY COLLAPSE [None]
